FAERS Safety Report 6087834-5 (Version None)
Quarter: 2009Q1

REPORT INFORMATION
  Report Type: 
  Country: None (occurrence: None)
  Receive Date: 20090219
  Receipt Date: 20090112
  Transmission Date: 20090719
  Serious: No
  Sender: FDA-Public Use
  Company Number: WAES 0703USA03776

PATIENT
  Age: 65 Year
  Sex: Female
  Weight: 97.5234 kg

DRUGS (7)
  1. JANUVIA [Suspect]
     Indication: DIABETES MELLITUS
     Dosage: 100 MG/DAILY/PO : 100 MG/BID/PO
     Route: 048
     Dates: start: 20070219
  2. JANUVIA [Suspect]
     Indication: DIABETES MELLITUS
     Dosage: 100 MG/DAILY/PO : 100 MG/BID/PO
     Route: 048
     Dates: start: 20090112
  3. ACTOS [Concomitant]
  4. AVANDIA [Concomitant]
  5. LANTUS [Concomitant]
  6. LIPITOR [Concomitant]
  7. LISINOPRIL [Concomitant]

REACTIONS (3)
  - ACCIDENTAL OVERDOSE [None]
  - BLOOD GLUCOSE INCREASED [None]
  - DRUG INEFFECTIVE [None]
